FAERS Safety Report 22392541 (Version 1)
Quarter: 2023Q2

REPORT INFORMATION
  Report Type: Spontaneous
  Country: US (occurrence: US)
  Receive Date: 20230601
  Receipt Date: 20230601
  Transmission Date: 20230721
  Serious: Yes (Other)
  Sender: FDA-Public Use
  Company Number: US-AMNEAL PHARMACEUTICALS-2023-AMRX-01231

PATIENT
  Age: 51 Year
  Sex: Male

DRUGS (2)
  1. BACLOFEN [Suspect]
     Active Substance: BACLOFEN
     Indication: Product used for unknown indication
     Dosage: 1608 MICROGRAM, QD
     Route: 037
     Dates: start: 20090311
  2. BACLOFEN [Suspect]
     Active Substance: BACLOFEN
     Dosage: 400 MICROGRAM, QD
     Route: 037

REACTIONS (4)
  - Fall [Unknown]
  - Muscle spasticity [Recovered/Resolved]
  - Complication associated with device [Not Recovered/Not Resolved]
  - Device breakage [Unknown]

NARRATIVE: CASE EVENT DATE: 20230201
